FAERS Safety Report 7654581-5 (Version None)
Quarter: 2011Q3

REPORT INFORMATION
  Report Type: 
  Country: None (occurrence: None)
  Receive Date: 20110803
  Receipt Date: 20110721
  Transmission Date: 20111222
  Serious: Yes (Disabling)
  Sender: FDA-Public Use
  Company Number: US-CELGENEUS-163-21880-11062288

PATIENT
  Sex: Female
  Weight: 61.744 kg

DRUGS (26)
  1. NORVASC [Concomitant]
     Indication: HYPERTENSION
     Dosage: 5 MILLIGRAM
     Route: 065
     Dates: start: 20100701
  2. BENADRYL [Concomitant]
     Indication: ANAPHYLAXIS PROPHYLAXIS
     Dosage: 25 MILLIGRAM
     Route: 041
     Dates: start: 20090828
  3. VITAMIN E [Concomitant]
     Indication: SUPPLEMENTATION THERAPY
     Dosage: 200 UNITS
     Route: 048
     Dates: start: 20080717
  4. NEXIUM [Concomitant]
     Dosage: 40 MILLIGRAM
     Route: 048
     Dates: start: 20080710
  5. PROCRIT [Concomitant]
     Dosage: 20,000 UNOT
     Dates: start: 20090710
  6. WARFARIN SODIUM [Concomitant]
     Indication: ANTICOAGULANT THERAPY
     Dosage: 4 MILLIGRAM
     Route: 048
     Dates: start: 20090803
  7. RESTORIL [Concomitant]
     Indication: SLEEP DISORDER
     Dosage: 15 MILLIGRAM
     Route: 048
     Dates: start: 20090724
  8. ALOXI [Concomitant]
     Indication: PROPHYLAXIS
     Dosage: .25 MILLIGRAM
     Dates: start: 20090630
  9. NEUMEGA [Concomitant]
     Indication: THROMBOCYTOPENIA
     Dosage: 2.5 MILLIGRAM
     Route: 058
     Dates: start: 20090724
  10. REVLIMID [Suspect]
     Indication: MULTIPLE MYELOMA
     Dosage: 25 MILLIGRAM
     Route: 048
     Dates: start: 20090702, end: 20100207
  11. VASOTEC [Concomitant]
     Indication: HYPERTENSION
     Dosage: 10 MILLIGRAM
     Route: 065
     Dates: start: 20100701
  12. ARIXTRA [Concomitant]
     Indication: ANTICOAGULANT THERAPY
     Dosage: 10 MILLIGRAM
     Route: 048
     Dates: start: 20090803
  13. PROCRIT [Concomitant]
     Dosage: 30,000 UNOT
     Dates: start: 20090716
  14. ATIVAN [Concomitant]
     Indication: SINUS TACHYCARDIA
     Route: 065
     Dates: start: 20100701
  15. WARFARIN SODIUM [Concomitant]
     Dosage: 2 MILLIGRAM
     Route: 048
     Dates: start: 20100128
  16. ALOXI [Concomitant]
     Dosage: .125 MILLIGRAM
     Route: 041
     Dates: start: 20090923
  17. WARFARIN SODIUM [Concomitant]
     Dosage: 1 MILLIGRAM
     Route: 048
     Dates: start: 20090803
  18. PROCRIT [Concomitant]
     Dosage: 40,000 UNOT
     Dates: start: 20090722
  19. NEUPOGEN [Concomitant]
     Indication: NEUTROPENIA
     Dosage: 350 MILLIGRAM
     Route: 058
     Dates: start: 20090622
  20. XANAX [Concomitant]
     Indication: ANXIETY
     Dosage: .25 MILLIGRAM
     Route: 048
     Dates: start: 20100704
  21. VENOFER [Concomitant]
     Indication: IRON DEFICIENCY
     Dosage: 200 MILLIGRAM
     Route: 041
     Dates: start: 20090925
  22. CARFILZOMIB [Suspect]
     Indication: MULTIPLE MYELOMA
     Dosage: 20 MILLIGRAM/SQ. METER
     Route: 041
     Dates: start: 20090709, end: 20100122
  23. VALACYCLOVIR [Concomitant]
     Dosage: 500 MILLIGRAM
     Route: 048
     Dates: start: 20090709
  24. PROCRIT [Concomitant]
     Dosage: 10,000 UNOT
     Route: 058
     Dates: start: 20090724
  25. IMODIUM [Concomitant]
     Dosage: 1 TABLET
     Route: 048
     Dates: start: 20090801
  26. SOLU-MEDROL [Concomitant]
     Indication: ANAPHYLAXIS PROPHYLAXIS
     Dosage: 50 MILLIGRAM
     Route: 041
     Dates: start: 20090925

REACTIONS (2)
  - VULVECTOMY [None]
  - MALIGNANT MELANOMA [None]
